FAERS Safety Report 10675862 (Version 4)
Quarter: 2015Q1

REPORT INFORMATION
  Report Type: Report from Study
  Country: NO (occurrence: NO)
  Receive Date: 20141225
  Receipt Date: 20150123
  Transmission Date: 20150720
  Serious: Yes (Other)
  Sender: FDA-Public Use
  Company Number: NO-BIOGENIDEC-2014BI049045

PATIENT
  Age: 28 Year
  Sex: Female

DRUGS (3)
  1. TYSABRI [Suspect]
     Active Substance: NATALIZUMAB
     Indication: MULTIPLE SCLEROSIS
     Route: 042
     Dates: start: 20130506, end: 20140317
  2. TYSABRI [Suspect]
     Active Substance: NATALIZUMAB
     Indication: MULTIPLE SCLEROSIS
     Route: 042
     Dates: start: 20141212
  3. NEURONTIN [Concomitant]
     Active Substance: GABAPENTIN
     Dates: start: 20130926

REACTIONS (1)
  - Caesarean section [Unknown]

NARRATIVE: CASE EVENT DATE: 20141210
